FAERS Safety Report 8983202 (Version 1)
Quarter: 2012Q4

REPORT INFORMATION
  Report Type: 
  Country: FR (occurrence: FR)
  Receive Date: 20121224
  Receipt Date: 20121224
  Transmission Date: 20130627
  Serious: Yes (Hospitalization)
  Sender: FDA-Public Use
  Company Number: PHHY2012FR118330

PATIENT
  Age: 74 Year
  Sex: Female

DRUGS (3)
  1. TEGRETOL [Suspect]
     Dosage: 100 mg, QD
     Route: 048
  2. ELIQUIS [Interacting]
     Indication: THROMBOSIS PROPHYLAXIS
     Dosage: 2.5 mg, BID
     Route: 048
     Dates: start: 20120928, end: 20121024
  3. COAPROVEL [Concomitant]
     Dosage: 1 DF, QD (irbesartan at 150 mg, hydrochlorothiazid at 12.5 mg)

REACTIONS (2)
  - Deep vein thrombosis [Recovered/Resolved]
  - Drug interaction [Unknown]
